FAERS Safety Report 5093557-1 (Version None)
Quarter: 2006Q3

REPORT INFORMATION
  Report Type: 
  Country: None (occurrence: None)
  Receive Date: 20060829
  Receipt Date: 20060810
  Transmission Date: 20061208
  Serious: Yes (Death)
  Sender: FDA-Public Use
  Company Number: US200606005058

PATIENT
  Age: 51 Year
  Sex: Female
  Weight: 98.4 kg

DRUGS (2)
  1. CYMBALTA [Suspect]
     Dosage: 60 MG
  2. PROPOXYPHENE (DEXTROPROPOXYPHENE) [Concomitant]

REACTIONS (1)
  - MULTIPLE DRUG OVERDOSE ACCIDENTAL [None]
